FAERS Safety Report 22255952 (Version 1)
Quarter: 2023Q2

REPORT INFORMATION
  Report Type: Spontaneous
  Country: US (occurrence: US)
  Receive Date: 20230426
  Receipt Date: 20230426
  Transmission Date: 20230722
  Serious: Yes (Hospitalization)
  Sender: FDA-Public Use
  Company Number: US-BIOVITRUM-2023-US-009620

PATIENT
  Age: 2 Year
  Sex: Female

DRUGS (2)
  1. SYNAGIS [Suspect]
     Active Substance: PALIVIZUMAB
     Indication: Premature baby
     Dosage: 15 MG/KG MONTHLY,  (50MG/0.5ML, 100MG/ML)
     Route: 030
     Dates: start: 202212
  2. SYNAGIS [Suspect]
     Active Substance: PALIVIZUMAB
     Indication: Respiratory tract malformation

REACTIONS (1)
  - Parainfluenzae virus infection [Unknown]

NARRATIVE: CASE EVENT DATE: 20230308
